FAERS Safety Report 6378095-8 (Version None)
Quarter: 2009Q3

REPORT INFORMATION
  Report Type: 
  Country: None (occurrence: None)
  Receive Date: 20090925
  Receipt Date: 20090922
  Transmission Date: 20100115
  Serious: Yes (Hospitalization)
  Sender: FDA-Public Use
  Company Number: CH-RB-020659-09

PATIENT
  Age: 85 Year
  Sex: Female

DRUGS (10)
  1. TEMGESIC [Suspect]
     Dosage: UNKNOWN DOSE.
     Route: 060
     Dates: start: 20090601, end: 20090615
  2. TEMGESIC [Suspect]
     Dosage: UNKNOWN DOSE.
     Route: 060
     Dates: start: 20090601, end: 20090615
  3. CLEXANE [Concomitant]
     Indication: DRUG USE FOR UNKNOWN INDICATION
     Dosage: DOSING INFORMATION UNKNOWN.
     Route: 065
  4. VITARUBIN [Concomitant]
     Indication: DRUG USE FOR UNKNOWN INDICATION
     Dosage: DOSING INFORMATION UNKNOWN.
     Route: 065
     Dates: start: 20090608
  5. LAXOBERON [Concomitant]
     Indication: DRUG USE FOR UNKNOWN INDICATION
     Dosage: DOSING INFORMATION UNKNOWN.
     Route: 065
     Dates: start: 20090612
  6. CALCIMAGON-D3 [Concomitant]
     Indication: DRUG USE FOR UNKNOWN INDICATION
     Dosage: DOSING INFORMATION UNKNOWN.
     Route: 065
     Dates: start: 20090612
  7. TRAMADOL HYDROCHLORIDE [Concomitant]
     Dosage: DOSING INFORMATION UNKNOWN.
     Route: 065
     Dates: start: 20090608, end: 20090612
  8. TRAMADOL HYDROCHLORIDE [Concomitant]
     Dosage: DOSING INFORMATION UNKNOWN.
     Route: 065
     Dates: start: 20090608, end: 20090612
  9. ACETAMINOPHEN [Concomitant]
     Indication: PAIN
     Dosage: DOSING INFORMATION UNKNOWN.
     Route: 065
  10. FOLIC ACID [Concomitant]
     Indication: DRUG USE FOR UNKNOWN INDICATION
     Dosage: DOSING INFORMATION UNKNOWN.
     Route: 065
     Dates: start: 20090608

REACTIONS (1)
  - ALTERED STATE OF CONSCIOUSNESS [None]
